FAERS Safety Report 24433622 (Version 5)
Quarter: 2024Q4

REPORT INFORMATION
  Report Type: Spontaneous
  Country: DE (occurrence: DE)
  Receive Date: 20241014
  Receipt Date: 20241226
  Transmission Date: 20250115
  Serious: Yes (Life-Threatening, Other)
  Sender: FRESENIUS KABI
  Company Number: DE-ROCHE-10000084302

PATIENT
  Age: 16 Year
  Sex: Male
  Weight: 74.95 kg

DRUGS (60)
  1. TOCILIZUMAB [Suspect]
     Active Substance: TOCILIZUMAB
     Indication: Non-Hodgkin^s lymphoma
     Dosage: 460 MG, 1X
     Dates: start: 20240807
  2. TOCILIZUMAB [Suspect]
     Active Substance: TOCILIZUMAB
     Dosage: UNK
     Dates: start: 20240807
  3. LENOGRASTIM [Suspect]
     Active Substance: LENOGRASTIM
     Indication: Non-Hodgkin^s lymphoma
     Dosage: 300 MICROGRAM ?FOA: POWDER AND SOLVENT FOR SOLUTION FOR INJECTION
     Route: 042
     Dates: start: 20240814
  4. LENOGRASTIM [Suspect]
     Active Substance: LENOGRASTIM
     Dosage: 300 MICROGRAM ?FOA: POWDER AND SOLVENT FOR SOLUTION FOR INJECTION
     Route: 058
     Dates: start: 20240805
  5. HYDROCORTISONE [Suspect]
     Active Substance: HYDROCORTISONE
     Indication: Non-Hodgkin^s lymphoma
     Dosage: 10 MG, 1X
     Dates: start: 20240902
  6. HYDROCORTISONE [Suspect]
     Active Substance: HYDROCORTISONE
     Dosage: UNK
     Dates: start: 20240902
  7. OBINUTUZUMAB [Suspect]
     Active Substance: OBINUTUZUMAB
     Indication: Non-Hodgkin^s lymphoma
     Dosage: 900 MG
     Dates: start: 20240731
  8. OBINUTUZUMAB [Suspect]
     Active Substance: OBINUTUZUMAB
     Dosage: 900 MG
     Dates: start: 20240731
  9. OBINUTUZUMAB [Suspect]
     Active Substance: OBINUTUZUMAB
     Dosage: DOSE LAST STUDY DRUG ADMIN PRIOR AE 900 MGSTART DATE OF MOST RECENT DOSE OF STUDY DRUG PRIOR TO AE A
  10. OBINUTUZUMAB [Suspect]
     Active Substance: OBINUTUZUMAB
     Dosage: DOSE LAST STUDY DRUG ADMIN PRIOR AE 900 MGSTART DATE OF MOST RECENT DOSE OF STUDY DRUG PRIOR TO AE A
     Route: 042
  11. IFOSFAMIDE [Suspect]
     Active Substance: IFOSFAMIDE
     Indication: Non-Hodgkin^s lymphoma
     Dosage: 5.3 G?FOA-INFUSION
     Dates: start: 20240802
  12. IFOSFAMIDE [Suspect]
     Active Substance: IFOSFAMIDE
     Dosage: 5.6 G?FOA-INFUSION
     Dates: start: 20240906
  13. IFOSFAMIDE [Suspect]
     Active Substance: IFOSFAMIDE
     Dosage: START DATE OF MOST RECENT DOSE OF STUDY DRUGPRIOR TO AE AND SAE ON 05-SEP-2024 DOSE LAST STUDY DRUG
     Route: 042
     Dates: start: 20240802
  14. ETOPOSIDE [Suspect]
     Active Substance: ETOPOSIDE
     Indication: Non-Hodgkin^s lymphoma
     Dosage: 176 MG, 1X?FOA-INFUSION
     Dates: start: 20240802
  15. ETOPOSIDE [Suspect]
     Active Substance: ETOPOSIDE
     Dosage: 186 MG?FOA-INFUSION
     Dates: start: 20240906
  16. ETOPOSIDE [Suspect]
     Active Substance: ETOPOSIDE
     Dosage: DOSE LAST STUDY DRUG ADMIN PRIOR AE 186 MGSTART DATE OF MOST RECENT DOSE OF STUDY DRUG PRIOR TO AE A
     Route: 042
     Dates: start: 20240802
  17. MESNA [Suspect]
     Active Substance: MESNA
     Indication: Non-Hodgkin^s lymphoma
     Dosage: 5500 MG, 1X?FOA-INFUSION
     Dates: start: 20240802
  18. MESNA [Suspect]
     Active Substance: MESNA
     Dosage: 6000 MG?FOA-INFUSION
     Dates: start: 20240906
  19. MESNA [Suspect]
     Active Substance: MESNA
     Dosage: DOSE LAST STUDY DRUG ADMIN PRIOR AE 6000 MGSTART DATE OF MOST RECENT DOSE OF STUDY DRUG PRIOR TO AE
     Route: 042
     Dates: start: 20240802
  20. CYTARABINE [Suspect]
     Active Substance: CYTARABINE
     Indication: Non-Hodgkin^s lymphoma
     Dosage: 30 MG, 1X
     Dates: start: 20240902
  21. CYTARABINE [Suspect]
     Active Substance: CYTARABINE
     Dosage: UNK
     Dates: start: 20240902
  22. COLUMVI [Suspect]
     Active Substance: GLOFITAMAB-GXBM
     Indication: Non-Hodgkin^s lymphoma
     Dosage: START DATE OF MOST RECENT DOSE OF STUDY DRUGPRIOR TO AE AND SAE ON 28-AUG-2024 DOSE LAST STUDY DRUG
     Route: 042
     Dates: start: 20240807
  23. COLUMVI [Suspect]
     Active Substance: GLOFITAMAB-GXBM
     Dosage: FOA: INFUSION
     Route: 042
  24. COLUMVI [Suspect]
     Active Substance: GLOFITAMAB-GXBM
     Dosage: UNK?ROA: INTRAVENOUS?FOA: INFUSION
     Route: 042
  25. COLUMVI [Suspect]
     Active Substance: GLOFITAMAB-GXBM
     Dosage: UNK?ROA: INTRAVENOUS?30 MG
     Route: 042
     Dates: start: 20240828
  26. CARBOPLATIN [Suspect]
     Active Substance: CARBOPLATIN
     Indication: Non-Hodgkin^s lymphoma
     Dosage: DOSE LAST STUDY DRUG ADMIN PRIOR AE 1180 MGSTART DATE OF MOST RECENT DOSE OF STUDY DRUG PRIOR TO AE
     Route: 042
     Dates: start: 20240802
  27. CARBOPLATIN [Suspect]
     Active Substance: CARBOPLATIN
     Dosage: DOSE LAST STUDY DRUG ADMIN PRIOR AE 1180 MGSTART DATE OF MOST RECENT DOSE OF STUDY DRUG PRIOR TO AE
     Route: 042
     Dates: start: 20240802
  28. MABTHERA [Suspect]
     Active Substance: RITUXIMAB
     Indication: Non-Hodgkin^s lymphoma
     Dosage: START AND END DATE OF MOST RECENT DOSE OF STUDY DRUG PRIOR TO AE AND SAE ON 02-SEP-2024?FOA: INFUSIO
     Route: 042
     Dates: start: 20240902
  29. MABTHERA [Suspect]
     Active Substance: RITUXIMAB
     Dosage: FOA: INFUSION
     Route: 042
  30. MABTHERA [Suspect]
     Active Substance: RITUXIMAB
     Dosage: UNK?FOA: INFUSION
     Route: 042
     Dates: start: 20240902
  31. MABTHERA [Suspect]
     Active Substance: RITUXIMAB
     Dosage: UNK?FOA: INFUSION
     Route: 042
  32. METHOTREXATE [Suspect]
     Active Substance: METHOTREXATE
     Indication: Non-Hodgkin^s lymphoma
     Dosage: START DATE OF MOST RECENT DOSE OF STUDY DRUGPRIOR TO AE AND SAE IS 02-SEP-2024
     Route: 037
     Dates: start: 20240902
  33. METHOTREXATE [Suspect]
     Active Substance: METHOTREXATE
     Dosage: UNK
     Route: 037
     Dates: start: 20240902
  34. METHYLPREDNISOLONE [Concomitant]
     Active Substance: METHYLPREDNISOLONE
     Indication: Product used for unknown indication
     Dosage: 120 MG?FOA-INJECTION
     Dates: start: 20240828, end: 20240828
  35. METHYLPREDNISOLONE [Concomitant]
     Active Substance: METHYLPREDNISOLONE
     Dosage: FOA-INJECTION
     Dates: start: 20240828, end: 20240828
  36. ACETAMINOPHEN [Concomitant]
     Active Substance: ACETAMINOPHEN
     Indication: Headache
     Dosage: UNK?FOA-INJECTION
     Route: 042
     Dates: start: 20240727
  37. ACETAMINOPHEN [Concomitant]
     Active Substance: ACETAMINOPHEN
     Dosage: UNK?FOA: INJECTION
     Dates: start: 20240727
  38. CAFFEINE [Concomitant]
     Active Substance: CAFFEINE
     Indication: Headache
     Dosage: UNK?FOA-TABLET
     Route: 048
     Dates: start: 20240727, end: 20240925
  39. CLEMASTINE [Concomitant]
     Active Substance: CLEMASTINE
     Indication: Product used for unknown indication
     Dosage: UNK?FOA-INJECTION
     Route: 042
     Dates: start: 20240828, end: 20240902
  40. AMPHOTERICIN B [Concomitant]
     Active Substance: AMPHOTERICIN B
     Indication: Product used for unknown indication
     Dosage: UNK
     Route: 048
     Dates: start: 20240922
  41. HUMAN RED BLOOD CELL [Concomitant]
     Active Substance: HUMAN RED BLOOD CELL
     Indication: Anaemia
     Dosage: UNK?FOA-INJECTION
     Route: 042
     Dates: start: 20240805
  42. PLATELETS [Concomitant]
     Active Substance: HUMAN PLATELET, ALLOGENIC
     Indication: Platelet count decreased
     Dosage: UNK?FOA-INJECTION
     Route: 042
     Dates: start: 20240804
  43. LEVETIRACETAM [Concomitant]
     Active Substance: LEVETIRACETAM
     Indication: Encephalopathy
     Dosage: 1000 MILLIGRAM, BID?FOA: INJECTION
     Route: 042
     Dates: start: 20240902
  44. LEVETIRACETAM [Concomitant]
     Active Substance: LEVETIRACETAM
     Dosage: 1500 MILLIGRAM, BID?FOA: INJECTION
     Route: 042
     Dates: start: 20240903, end: 20240922
  45. LEVETIRACETAM [Concomitant]
     Active Substance: LEVETIRACETAM
     Dosage: 1500 MILLIGRAM?FOA: INJECTION
     Route: 042
     Dates: start: 20240923, end: 20240923
  46. LEVETIRACETAM [Concomitant]
     Active Substance: LEVETIRACETAM
     Dosage: 500 MILLIGRAM, BID?FOA: INJECTION
     Route: 042
     Dates: start: 20240805, end: 20240901
  47. LEVETIRACETAM [Concomitant]
     Active Substance: LEVETIRACETAM
     Indication: Encephalopathy
     Dosage: 1500 MILLIGRAM, QD?FOA: TABLET
     Route: 048
     Dates: start: 20240924
  48. MELATONIN [Concomitant]
     Active Substance: MELATONIN
     Indication: Product used for unknown indication
     Dosage: UNK?FOA-CAPSULE
     Route: 048
     Dates: start: 20240806, end: 20240913
  49. PANTOPRAZOLE [Concomitant]
     Active Substance: PANTOPRAZOLE
     Indication: Product used for unknown indication
     Dosage: UNK?FOA-TABLET
     Route: 048
     Dates: start: 20240728, end: 20240907
  50. PANTOPRAZOLE [Concomitant]
     Active Substance: PANTOPRAZOLE
     Dosage: 40 MILLIGRAM, QD?FOA: INJECTION
     Route: 042
     Dates: start: 20240917, end: 20240923
  51. PANTOPRAZOLE [Concomitant]
     Active Substance: PANTOPRAZOLE
     Indication: Product used for unknown indication
     Dosage: UNK?FOA-INJECTION
     Dates: start: 20240908, end: 20240923
  52. SULFAMETHOXAZOLE\TRIMETHOPRIM [Concomitant]
     Active Substance: SULFAMETHOXAZOLE\TRIMETHOPRIM
     Indication: Product used for unknown indication
     Dosage: UNK?FOA-TABLET
     Route: 048
     Dates: start: 20240726, end: 20240913
  53. ONDANSETRON [Concomitant]
     Active Substance: ONDANSETRON
     Indication: Product used for unknown indication
     Dosage: UNK
     Route: 042
     Dates: start: 20240902, end: 20240907
  54. ONDANSETRON [Concomitant]
     Active Substance: ONDANSETRON
     Dosage: 8 MILLIGRAM, BID
     Route: 042
     Dates: start: 20240903, end: 20240906
  55. ONDANSETRON [Concomitant]
     Active Substance: ONDANSETRON
     Dosage: 8 MILLIGRAM, QD
     Route: 042
     Dates: start: 20240907, end: 20240907
  56. DEXAMETHASONE [Concomitant]
     Active Substance: DEXAMETHASONE
     Indication: Neoplasm malignant
     Dosage: UNK
     Route: 065
     Dates: start: 20241001
  57. DIMENHYDRINATE [Concomitant]
     Active Substance: DIMENHYDRINATE
     Indication: Product used for unknown indication
     Dosage: UNK
  58. MICAFUNGIN [Concomitant]
     Active Substance: MICAFUNGIN SODIUM
     Indication: Product used for unknown indication
     Dosage: UNK
  59. METAMIZOL [Concomitant]
     Active Substance: METAMIZOLE SODIUM
     Indication: Product used for unknown indication
     Dosage: UNK
  60. TRANEXAMSAURE EBERTH (TRANEXAMIC ACID) [Concomitant]
     Indication: Epistaxis
     Dosage: 1 OTHER, PRN
     Route: 045
     Dates: start: 20240812

REACTIONS (2)
  - Sepsis [Recovered/Resolved]
  - Febrile neutropenia [Not Recovered/Not Resolved]

NARRATIVE: CASE EVENT DATE: 20240916
